FAERS Safety Report 22276608 (Version 1)
Quarter: 2023Q2

REPORT INFORMATION
  Report Type: Report from Study
  Country: CA (occurrence: CA)
  Receive Date: 20230503
  Receipt Date: 20230503
  Transmission Date: 20230722
  Serious: Yes (Other)
  Sender: FDA-Public Use
  Company Number: CA-ABBVIE-4749574

PATIENT
  Age: 18 Year
  Sex: Female

DRUGS (1)
  1. SKYRIZI [Suspect]
     Active Substance: RISANKIZUMAB-RZAA
     Indication: Crohn^s disease
     Dosage: FIRST ADMIN DATE-13 APR 2023
     Route: 058

REACTIONS (2)
  - Tonsillectomy [Unknown]
  - Cellulitis [Unknown]

NARRATIVE: CASE EVENT DATE: 20230401
